FAERS Safety Report 16887654 (Version 2)
Quarter: 2020Q1

REPORT INFORMATION
  Report Type: Spontaneous
  Country: US (occurrence: US)
  Receive Date: 20191005
  Receipt Date: 20200227
  Transmission Date: 20200409
  Serious: Yes (Other)
  Sender: FDA-Public Use
  Company Number: US-TEVA-2019-US-1116902

PATIENT
  Sex: Female

DRUGS (18)
  1. COPAXONE [Suspect]
     Active Substance: GLATIRAMER ACETATE
     Indication: MULTIPLE SCLEROSIS
     Route: 065
     Dates: start: 20181109
  2. MELATONIN [Concomitant]
     Active Substance: MELATONIN
  3. CEPHALEXIN. [Concomitant]
     Active Substance: CEPHALEXIN
  4. MIRALAX [Concomitant]
     Active Substance: POLYETHYLENE GLYCOL 3350
  5. QUETIAPINE. [Concomitant]
     Active Substance: QUETIAPINE
  6. KRILL OIL [Concomitant]
     Active Substance: DIETARY SUPPLEMENT\KRILL OIL
  7. ALEVE [Concomitant]
     Active Substance: NAPROXEN SODIUM
  8. VITAMIN D3 [Concomitant]
     Active Substance: CHOLECALCIFEROL
  9. BACLOFEN. [Concomitant]
     Active Substance: BACLOFEN
  10. TOPIRAMATE. [Concomitant]
     Active Substance: TOPIRAMATE
  11. ATORVASTATIN [Concomitant]
     Active Substance: ATORVASTATIN
  12. SENNA [Concomitant]
     Active Substance: SENNA LEAF\SENNOSIDES\SENNOSIDES A AND B
  13. LINZESS [Concomitant]
     Active Substance: LINACLOTIDE
  14. PROBIOTIC [Concomitant]
     Active Substance: PROBIOTICS NOS
  15. MULTIVITAMIN [Concomitant]
     Active Substance: VITAMINS
  16. BUPROPION. [Concomitant]
     Active Substance: BUPROPION
  17. SIMVASTATIN. [Concomitant]
     Active Substance: SIMVASTATIN
  18. OMEPRAZOLE. [Concomitant]
     Active Substance: OMEPRAZOLE

REACTIONS (7)
  - Neuropathy peripheral [Not Recovered/Not Resolved]
  - Urinary tract infection [Recovered/Resolved]
  - Bipolar disorder [Not Recovered/Not Resolved]
  - Paraesthesia [Not Recovered/Not Resolved]
  - Spinal cord herniation [Not Recovered/Not Resolved]
  - Alopecia [Not Recovered/Not Resolved]
  - Constipation [Recovered/Resolved]
